FAERS Safety Report 9202869 (Version 5)
Quarter: 2014Q3

REPORT INFORMATION
  Report Type: Spontaneous
  Country: CA (occurrence: CA)
  Receive Date: 20130402
  Receipt Date: 20140813
  Transmission Date: 20150326
  Serious: Yes (Death, Hospitalization, Other)
  Sender: FDA-Public Use
  Company Number: CA-AMGEN-CANSP2013021968

PATIENT
  Age: 73 Year
  Sex: Male
  Weight: 68 kg

DRUGS (16)
  1. MORPHINE [Concomitant]
     Active Substance: MORPHINE
  2. XGEVA [Suspect]
     Active Substance: DENOSUMAB
     Indication: METASTASES TO BONE
     Dosage: 120 MG, / 1.7ML QMO
     Route: 058
     Dates: start: 20120831
  3. XGEVA [Suspect]
     Active Substance: DENOSUMAB
     Dosage: 1.7 ML, UNK
     Route: 058
     Dates: start: 20120928
  4. XGEVA [Suspect]
     Active Substance: DENOSUMAB
     Dosage: 1.7 ML, UNK
     Route: 058
     Dates: start: 20121026
  5. HYDROMORPH CONTIN [Concomitant]
     Active Substance: HYDROMORPHONE
     Indication: METASTASIS
     Dosage: 3 UNK, Q8H
     Route: 048
     Dates: start: 20120728
  6. DILAUDID [Concomitant]
     Active Substance: HYDROMORPHONE HYDROCHLORIDE
     Indication: DYSPNOEA
     Dosage: 1-2,Q1/2 AS NECESSARY
     Route: 048
     Dates: start: 20121213
  7. CISPLATIN. [Concomitant]
     Active Substance: CISPLATIN
     Indication: LUNG CANCER METASTATIC
     Dosage: UNK
     Dates: start: 20120530, end: 20130801
  8. GEMCITABINE [Concomitant]
     Active Substance: GEMCITABINE\GEMCITABINE HYDROCHLORIDE
     Indication: LUNG CANCER METASTATIC
     Dosage: UNK
     Dates: start: 20120530, end: 20120801
  9. FUROSEMIDE. [Concomitant]
     Active Substance: FUROSEMIDE
     Indication: GRAVITATIONAL OEDEMA
     Dosage: 10 MG, QD
     Route: 048
     Dates: start: 20130205
  10. CRIZOTINIB [Suspect]
     Active Substance: CRIZOTINIB
     Indication: LUNG CANCER METASTATIC
     Dosage: 250 MG, BID
     Route: 048
     Dates: start: 20121024, end: 20130130
  11. PRADAXA [Concomitant]
     Active Substance: DABIGATRAN ETEXILATE MESYLATE
  12. XALKORI [Suspect]
     Active Substance: CRIZOTINIB
     Indication: PRODUCT USED FOR UNKNOWN INDICATION
     Dosage: 250 MG, BID
     Route: 048
  13. METOPROLOL [Concomitant]
     Active Substance: METOPROLOL
     Indication: ATRIAL FIBRILLATION
     Dosage: 25 UNK, BID
     Route: 048
     Dates: start: 20130110
  14. PRADAXA [Concomitant]
     Active Substance: DABIGATRAN ETEXILATE MESYLATE
     Indication: ATRIAL FIBRILLATION
     Dosage: 150 UNK, BID
     Route: 048
     Dates: start: 2006
  15. XGEVA [Suspect]
     Active Substance: DENOSUMAB
     Dosage: 1.7 ML, UNK
     Route: 058
     Dates: start: 20130117
  16. PREDNISONE. [Concomitant]
     Active Substance: PREDNISONE
     Indication: DYSPNOEA
     Dosage: 50 MG, QD
     Route: 048
     Dates: start: 20120919

REACTIONS (9)
  - Atrial fibrillation [Fatal]
  - Spinal fracture [Fatal]
  - Cardiac failure congestive [Fatal]
  - Pneumonia [Fatal]
  - Odynophagia [Fatal]
  - Cough [Recovering/Resolving]
  - Dyspnoea [Recovering/Resolving]
  - Lung neoplasm malignant [Fatal]
  - Malignant neoplasm progression [Fatal]

NARRATIVE: CASE EVENT DATE: 20120904
